FAERS Safety Report 9367019 (Version 2)
Quarter: 2013Q3

REPORT INFORMATION
  Report Type: Spontaneous
  Country: US (occurrence: US)
  Receive Date: 20130625
  Receipt Date: 20130702
  Transmission Date: 20140515
  Serious: Yes (Hospitalization)
  Sender: FDA-Public Use
  Company Number: US-BAXTER-2013BAX024050

PATIENT
  Age: 74 Year
  Sex: Female

DRUGS (5)
  1. DIANEAL LOW CALCIUM [Suspect]
     Indication: PERITONEAL DIALYSIS
     Route: 033
     Dates: start: 201212
  2. DIANEAL LOW CALCIUM [Suspect]
     Indication: PERITONEAL DIALYSIS
     Route: 033
     Dates: start: 201212
  3. DIANEAL LOW CALCIUM (ULTRABAG) [Suspect]
     Indication: PERITONEAL DIALYSIS
     Route: 033
     Dates: start: 201212
  4. DIANEAL LOW CALCIUM (ULTRABAG) [Suspect]
     Indication: PERITONEAL DIALYSIS
     Route: 033
     Dates: start: 201212
  5. INSULIN [Concomitant]
     Indication: DIABETES MELLITUS
     Route: 065

REACTIONS (4)
  - Anaemia [Recovering/Resolving]
  - Arthritis [Recovering/Resolving]
  - Disease complication [Recovering/Resolving]
  - Hypotension [Recovered/Resolved]
